FAERS Safety Report 4955462-8 (Version None)
Quarter: 2006Q1

REPORT INFORMATION
  Report Type: 
  Country: None (occurrence: None)
  Receive Date: 20060328
  Receipt Date: 20051118
  Transmission Date: 20060701
  Serious: Yes (Death)
  Sender: FDA-Public Use
  Company Number: US-GLAXOSMITHKLINE-A0583938A

PATIENT
  Age: 10 Year
  Sex: Male
  Weight: 40.9 kg

DRUGS (7)
  1. ADVAIR DISKUS 100/50 [Suspect]
     Indication: ASTHMA
     Dosage: 1PUFF TWICE PER DAY
     Route: 055
     Dates: start: 20030505
  2. SEREVENT [Suspect]
     Route: 055
  3. CONCERTA [Concomitant]
     Indication: ATTENTION DEFICIT/HYPERACTIVITY DISORDER
     Dosage: 36MG PER DAY
     Route: 048
  4. ELIDEL [Concomitant]
     Indication: ECZEMA
     Route: 061
  5. ALBUTEROL [Concomitant]
     Indication: ASTHMA
     Route: 055
  6. CLARINEX [Concomitant]
     Dosage: 1TAB PER DAY
     Route: 048
  7. AUGMENTIN '125' [Concomitant]
     Indication: TOOTH ABSCESS
     Route: 048

REACTIONS (3)
  - ASTHMA [None]
  - RESPIRATORY ARREST [None]
  - THERAPY NON-RESPONDER [None]
